FAERS Safety Report 7485075-8 (Version None)
Quarter: 2011Q2

REPORT INFORMATION
  Report Type: 
  Country: None (occurrence: None)
  Receive Date: 20110517
  Receipt Date: 20101111
  Transmission Date: 20111010
  Serious: No
  Sender: FDA-Public Use
  Company Number: US-BAYER-2010-003943

PATIENT
  Sex: Female
  Weight: 67 kg

DRUGS (5)
  1. LOTREL [Concomitant]
  2. PLAVIX [Concomitant]
  3. GLYBURIDE [Concomitant]
  4. ALEVE (CAPLET) [Suspect]
     Indication: ANALGESIC THERAPY
  5. METFORMIN HCL [Concomitant]

REACTIONS (2)
  - OROPHARYNGEAL DISCOMFORT [None]
  - UNEVALUABLE EVENT [None]
